FAERS Safety Report 17663086 (Version 1)
Quarter: 2020Q2

REPORT INFORMATION
  Report Type: Spontaneous
  Country: IN (occurrence: IN)
  Receive Date: 20200414
  Receipt Date: 20200414
  Transmission Date: 20200713
  Serious: Yes (Other)
  Sender: FDA-Public Use
  Company Number: IN-SUN PHARMACEUTICAL INDUSTRIES LTD-2020R1-243071

PATIENT
  Age: 20 Year
  Sex: Male

DRUGS (4)
  1. FLUPRITINE [Concomitant]
     Indication: WITHDRAWAL SYNDROME
     Dosage: 800 MILLIGRAM, DAILY
     Route: 065
  2. BUPRENORPHINE. [Suspect]
     Active Substance: BUPRENORPHINE
     Indication: WITHDRAWAL SYNDROME
     Dosage: 6 MILLIGRAM, DAILY (THREE DIVIDED DOSES)
     Route: 065
  3. BUPRENORPHINE. [Suspect]
     Active Substance: BUPRENORPHINE
     Dosage: 4 MILLIGRAM, DAILY
     Route: 065
  4. BUPRENORPHINE. [Suspect]
     Active Substance: BUPRENORPHINE
     Dosage: UNK (AFTERNOON DOSE REDUCED FROM 2 MG TO 1.2 MG)
     Route: 065

REACTIONS (1)
  - Hallucination, auditory [Recovering/Resolving]
